FAERS Safety Report 18999316 (Version 1)
Quarter: 2021Q1

REPORT INFORMATION
  Report Type: Report from Study
  Country: IE (occurrence: IE)
  Receive Date: 20210311
  Receipt Date: 20210311
  Transmission Date: 20210420
  Serious: Yes (Other)
  Sender: FDA-Public Use
  Company Number: IE-JNJFOC-20210116920

PATIENT
  Age: 76 Year
  Sex: Male

DRUGS (7)
  1. MIRAP [MIRTAZAPINE] [Concomitant]
     Active Substance: MIRTAZAPINE
     Route: 050
  2. DELTACORTRIL [Concomitant]
     Active Substance: PREDNISOLONE
     Route: 050
  3. LUPRON [Concomitant]
     Active Substance: LEUPROLIDE ACETATE
     Route: 050
  4. ATORVASTATIN [Concomitant]
     Active Substance: ATORVASTATIN
     Route: 050
  5. FIRMAGON [Concomitant]
     Active Substance: DEGARELIX ACETATE
     Route: 050
  6. ZYTIGA [Suspect]
     Active Substance: ABIRATERONE ACETATE
     Indication: PROSTATE CANCER
     Route: 048
     Dates: start: 20200828
  7. IREVEN [Concomitant]
     Route: 050

REACTIONS (1)
  - Cataract [Not Recovered/Not Resolved]

NARRATIVE: CASE EVENT DATE: 202008
